FAERS Safety Report 10081353 (Version 3)
Quarter: 2014Q4

REPORT INFORMATION
  Report Type: Spontaneous
  Country: US (occurrence: US)
  Receive Date: 20140416
  Receipt Date: 20141201
  Transmission Date: 20150528
  Serious: Yes (Hospitalization)
  Sender: FDA-Public Use
  Company Number: US-BAYER-2014-055746

PATIENT
  Age: 35 Year
  Sex: Female

DRUGS (3)
  1. CELEXA [Concomitant]
     Active Substance: CITALOPRAM HYDROBROMIDE
     Dosage: UNK
     Dates: start: 20090519
  2. LISINOPRIL. [Concomitant]
     Active Substance: LISINOPRIL
     Dosage: UNK
     Dates: start: 20090509
  3. MIRENA [Suspect]
     Active Substance: LEVONORGESTREL
     Indication: CONTRACEPTION
     Dosage: 20 MCG/24HR, CONT
     Route: 015
     Dates: start: 20061005, end: 20090519

REACTIONS (10)
  - Emotional distress [None]
  - Back pain [None]
  - Abdominal pain [None]
  - Depressed mood [None]
  - Fear [None]
  - Uterine perforation [None]
  - Pelvic pain [None]
  - Depression [None]
  - Anxiety [None]
  - Injury [None]

NARRATIVE: CASE EVENT DATE: 20090425
